FAERS Safety Report 24047189 (Version 2)
Quarter: 2024Q3

REPORT INFORMATION
  Report Type: Report from Study
  Country: US (occurrence: US)
  Receive Date: 20240703
  Receipt Date: 20240731
  Transmission Date: 20241017
  Serious: Yes (Hospitalization)
  Sender: CALLIDITAS THERAPEUTICS
  Company Number: US-Calliditas-2024CAL01187

PATIENT
  Age: 40 Year
  Sex: Female

DRUGS (1)
  1. TARPEYO [Suspect]
     Active Substance: BUDESONIDE
     Indication: IgA nephropathy
     Route: 048
     Dates: start: 20240531

REACTIONS (5)
  - Hypertensive urgency [Unknown]
  - Dyspnoea [Unknown]
  - Asthenia [Unknown]
  - Swelling [Unknown]
  - Headache [Unknown]
